FAERS Safety Report 4421446-1 (Version None)
Quarter: 2004Q3

REPORT INFORMATION
  Report Type: 
  Country: None (occurrence: None)
  Receive Date: 20040709
  Receipt Date: 20040610
  Transmission Date: 20050211
  Serious: No
  Sender: FDA-Public Use
  Company Number: 2004S1000114

PATIENT
  Sex: Female

DRUGS (4)
  1. CUBICIN [Suspect]
     Indication: PULMONARY EMBOLISM
     Dosage: 6 MG/KG; IV
     Route: 042
     Dates: start: 20040601, end: 20040601
  2. CUBICIN [Suspect]
     Indication: SEPSIS
     Dosage: 6 MG/KG; IV
     Route: 042
     Dates: start: 20040601, end: 20040601
  3. VANCOMYCIN [Concomitant]
  4. ANTIFUNGAL [Concomitant]

REACTIONS (1)
  - RASH [None]
